FAERS Safety Report 11409223 (Version 4)
Quarter: 2015Q4

REPORT INFORMATION
  Report Type: Report from Study
  Country: US (occurrence: US)
  Receive Date: 20150824
  Receipt Date: 20151103
  Transmission Date: 20160304
  Serious: Yes (Other)
  Sender: FDA-Public Use
  Company Number: US-AMGEN-USASP2015083359

PATIENT
  Age: 61 Year
  Sex: Female

DRUGS (1)
  1. ENBREL [Suspect]
     Active Substance: ETANERCEPT
     Indication: RHEUMATOID ARTHRITIS
     Dosage: 50 MG, QWK
     Route: 065
     Dates: start: 20150611, end: 20150814

REACTIONS (8)
  - Diarrhoea [Unknown]
  - Cellulitis [Unknown]
  - Renal disorder [Unknown]
  - Drug ineffective [Unknown]
  - Mobility decreased [Unknown]
  - Urinary tract infection [Unknown]
  - Injection site pruritus [Unknown]
  - Fall [Unknown]

NARRATIVE: CASE EVENT DATE: 2015
